FAERS Safety Report 5163382-1 (Version None)
Quarter: 2006Q4

REPORT INFORMATION
  Report Type: 
  Country: None (occurrence: None)
  Receive Date: 20061204
  Receipt Date: 20061122
  Transmission Date: 20070319
  Serious: Yes (Hospitalization)
  Sender: FDA-Public Use
  Company Number: US-JNJFOC-20061002008

PATIENT
  Sex: Male
  Weight: 72.58 kg

DRUGS (21)
  1. REMICADE [Suspect]
     Route: 042
  2. REMICADE [Suspect]
     Dosage: 3 VIALS
     Route: 042
  3. REMICADE [Suspect]
     Indication: RHEUMATOID ARTHRITIS
     Dosage: 3 VIALS
     Route: 042
  4. METHOTREXATE [Concomitant]
     Indication: RHEUMATOID ARTHRITIS
  5. PREDNISONE TAB [Concomitant]
     Indication: RHEUMATOID ARTHRITIS
  6. ARAVA [Concomitant]
  7. ADVAIR DISKUS 100/50 [Concomitant]
  8. PROTONIX [Concomitant]
     Route: 048
  9. LIPITOR [Concomitant]
     Route: 048
  10. TRAZODONE HCL [Concomitant]
     Route: 048
  11. FOLATE [Concomitant]
     Route: 048
  12. MULTI-VITAMIN [Concomitant]
  13. OXYCONTIN [Concomitant]
     Indication: PAIN
  14. PERCOCET-5 [Concomitant]
     Indication: BREAKTHROUGH PAIN
     Dosage: PRN
  15. FOLIC ACID [Concomitant]
  16. ARTHROTEC [Concomitant]
  17. LEUCOVORIN CALCIUM [Concomitant]
  18. ENBREL [Concomitant]
  19. FOSAMAX [Concomitant]
     Indication: OSTEOPOROSIS
  20. CYMBALTA [Concomitant]
  21. CALCIUM [Concomitant]

REACTIONS (7)
  - BENIGN LUNG NEOPLASM [None]
  - DIARRHOEA [None]
  - HICCUPS [None]
  - LARYNGEAL NEOPLASM [None]
  - PNEUMONIA [None]
  - PULMONARY FIBROSIS [None]
  - WEIGHT DECREASED [None]
